FAERS Safety Report 9178473 (Version 1)
Quarter: 2013Q1

REPORT INFORMATION
  Report Type: Spontaneous
  Country: US (occurrence: US)
  Receive Date: 20130321
  Receipt Date: 20130321
  Transmission Date: 20140127
  Serious: Yes (Other)
  Sender: FDA-Public Use
  Company Number: US-BAYER-2013-032427

PATIENT
  Age: 43 Year
  Sex: Female

DRUGS (7)
  1. GIANVI [Suspect]
     Dosage: 150 UNK, UNK
  2. YAZ [Suspect]
     Indication: CONTRACEPTION
  3. FLUCONAZOLE [Concomitant]
     Dosage: 150 MG,PER DAY
     Route: 048
  4. PROPANOLOL [Concomitant]
     Dosage: 60 MG,PER DAY
     Route: 048
  5. HYDROCODONE COMPOUND [Concomitant]
     Indication: PAIN
     Dosage: 5-500 FOUR TIMES A DAY
  6. ACETAMINOPHEN [Concomitant]
     Indication: PAIN
     Dosage: 5-500 FOUR TIMES A DAY
     Route: 048
  7. PHENTERMINE [Concomitant]
     Dosage: 37.5 MG, UNK
     Route: 048

REACTIONS (2)
  - Deep vein thrombosis [None]
  - Thrombophlebitis superficial [None]
